FAERS Safety Report 23558172 (Version 1)
Quarter: 2024Q1

REPORT INFORMATION
  Report Type: Spontaneous
  Country: US (occurrence: US)
  Receive Date: 20240223
  Receipt Date: 20240223
  Transmission Date: 20240410
  Serious: Yes (Hospitalization, Other)
  Sender: FDA-Public Use
  Company Number: US-UPSHER-SMITH LABORATORIES, LLC-2024USL00168

PATIENT
  Age: 1 Year

DRUGS (1)
  1. VIGADRONE [Suspect]
     Active Substance: VIGABATRIN
     Indication: Infantile spasms
     Dosage: 250 MG, 2X/DAY
     Route: 048
     Dates: start: 20231117

REACTIONS (3)
  - Oxygen saturation decreased [Not Recovered/Not Resolved]
  - Respiratory syncytial virus infection [Unknown]
  - COVID-19 [Unknown]

NARRATIVE: CASE EVENT DATE: 20231201
